FAERS Safety Report 5449629-2 (Version None)
Quarter: 2007Q3

REPORT INFORMATION
  Report Type: 
  Country: None (occurrence: None)
  Receive Date: 20070912
  Receipt Date: 20070905
  Transmission Date: 20080115
  Serious: Yes (Other)
  Sender: FDA-Public Use
  Company Number: PHNU2007DE03060

PATIENT
  Sex: Male

DRUGS (2)
  1. FUMADERM [Concomitant]
  2. SANDIMMUNE [Suspect]
     Indication: PSORIASIS
     Dosage: 200MG/DAY
     Dates: start: 20070608

REACTIONS (1)
  - BLOOD TRIGLYCERIDES INCREASED [None]
